FAERS Safety Report 17501758 (Version 3)
Quarter: 2020Q2

REPORT INFORMATION
  Report Type: Spontaneous
  Country: US (occurrence: US)
  Receive Date: 20200305
  Receipt Date: 20200618
  Transmission Date: 20200713
  Serious: No
  Sender: FDA-Public Use
  Company Number: US-PFIZER INC-2020097631

PATIENT
  Age: 59 Year
  Sex: Male

DRUGS (1)
  1. XELJANZ [Suspect]
     Active Substance: TOFACITINIB CITRATE
     Indication: RHEUMATOID ARTHRITIS
     Dosage: 5 MG, 1 TABLET TWICE A DAY
     Route: 048
     Dates: start: 201905

REACTIONS (7)
  - Cough [Recovering/Resolving]
  - Infection [Recovering/Resolving]
  - Headache [Unknown]
  - Respiratory tract congestion [Recovering/Resolving]
  - Sputum discoloured [Recovering/Resolving]
  - Neck pain [Unknown]
  - Nasopharyngitis [Recovering/Resolving]
